FAERS Safety Report 19441073 (Version 1)
Quarter: 2021Q2

REPORT INFORMATION
  Report Type: Spontaneous
  Country: US (occurrence: US)
  Receive Date: 20210617
  Receipt Date: 20210617
  Transmission Date: 20210717
  Serious: Yes (Disabling, Other)
  Sender: FDA-Public Use
  Company Number: None

PATIENT
  Age: 57 Year
  Sex: Male
  Weight: 74.25 kg

DRUGS (1)
  1. CIPROFLOXACIN. [Suspect]
     Active Substance: CIPROFLOXACIN
     Indication: URINARY TRACT INFECTION
     Route: 048
     Dates: start: 20161101, end: 20161201

REACTIONS (5)
  - Back pain [None]
  - Neuropathy peripheral [None]
  - Feeling abnormal [None]
  - Nervous system disorder [None]
  - Visual impairment [None]

NARRATIVE: CASE EVENT DATE: 20161101
